FAERS Safety Report 18975871 (Version 2)
Quarter: 2021Q1

REPORT INFORMATION
  Report Type: Spontaneous
  Country: US (occurrence: US)
  Receive Date: 20210305
  Receipt Date: 20210308
  Transmission Date: 20210420
  Serious: Yes (Other)
  Sender: FDA-Public Use
  Company Number: US-REGENERON PHARMACEUTICALS, INC.-2021-30795

PATIENT

DRUGS (1)
  1. LIBTAYO [Suspect]
     Active Substance: CEMIPLIMAB-RWLC
     Indication: PRODUCT USED FOR UNKNOWN INDICATION
     Dosage: 4 DOSES

REACTIONS (12)
  - Eyelid ptosis [Recovering/Resolving]
  - Miller Fisher syndrome [Recovering/Resolving]
  - Blood creatine phosphokinase increased [Recovering/Resolving]
  - Asthenia [Recovering/Resolving]
  - Dyspnoea [Recovering/Resolving]
  - Diplopia [Recovering/Resolving]
  - Muscle strength abnormal [Recovering/Resolving]
  - Muscular weakness [Recovering/Resolving]
  - Eye movement disorder [Recovering/Resolving]
  - Areflexia [Recovering/Resolving]
  - Myopathy [Recovering/Resolving]
  - Hepatic enzyme increased [Recovering/Resolving]
